FAERS Safety Report 23363767 (Version 3)
Quarter: 2024Q1

REPORT INFORMATION
  Report Type: Report from Study
  Country: CA (occurrence: CA)
  Receive Date: 20240103
  Receipt Date: 20240126
  Transmission Date: 20240410
  Serious: Yes (Other)
  Sender: FDA-Public Use
  Company Number: CA-JNJFOC-20231264471

PATIENT
  Age: 21 Year
  Sex: Male

DRUGS (2)
  1. BALVERSA [Suspect]
     Active Substance: ERDAFITINIB
     Indication: Brain neoplasm
     Route: 048
     Dates: start: 20220903, end: 20231221
  2. BALVERSA [Suspect]
     Active Substance: ERDAFITINIB
     Indication: Optic glioma
     Route: 048
     Dates: start: 20220903

REACTIONS (4)
  - Peritonsillar abscess [Not Recovered/Not Resolved]
  - Stomatitis [Unknown]
  - Treatment noncompliance [Unknown]
  - Fatigue [Not Recovered/Not Resolved]

NARRATIVE: CASE EVENT DATE: 20230101
